FAERS Safety Report 14183912 (Version 1)
Quarter: 2017Q4

REPORT INFORMATION
  Report Type: Spontaneous
  Country: GB (occurrence: GB)
  Receive Date: 20171113
  Receipt Date: 20171113
  Transmission Date: 20180321
  Serious: Yes (Hospitalization)
  Sender: FDA-Public Use
  Company Number: GB-TEVA-824311ACC

PATIENT
  Age: 53 Year
  Sex: Female

DRUGS (10)
  1. FLUOXETINE [Concomitant]
     Active Substance: FLUOXETINE HYDROCHLORIDE
     Dosage: 60 MILLIGRAM DAILY;
  2. SERETIDE [Concomitant]
     Active Substance: FLUTICASONE PROPIONATE\SALMETEROL XINAFOATE
     Dosage: 4 DOSAGE FORMS DAILY;
  3. LEVOTHYROXINE. [Concomitant]
     Active Substance: LEVOTHYROXINE
     Dosage: 125 MICROGRAM DAILY;
  4. PROCYCLIDINE [Concomitant]
     Active Substance: PROCYCLIDINE
     Dosage: 10 MILLIGRAM DAILY;
  5. LAMOTRIGINE. [Concomitant]
     Active Substance: LAMOTRIGINE
     Dosage: 400 MILLIGRAM DAILY;
  6. PRIADEL [Concomitant]
     Active Substance: LITHIUM CARBONATE
     Dosage: 600 MILLIGRAM DAILY;
  7. HALOPERIDOL. [Suspect]
     Active Substance: HALOPERIDOL
     Dosage: 15 MILLIGRAM DAILY;
  8. MONTELUKAST [Concomitant]
     Active Substance: MONTELUKAST SODIUM
     Dosage: 10 MILLIGRAM DAILY;
  9. SALBUTAMOL [Concomitant]
     Active Substance: ALBUTEROL
     Route: 055
  10. SIMVASTATIN. [Concomitant]
     Active Substance: SIMVASTATIN
     Dosage: 20 MILLIGRAM DAILY;

REACTIONS (5)
  - Balance disorder [Unknown]
  - Confusional state [Unknown]
  - Parkinsonism [Unknown]
  - Progressive supranuclear palsy [Unknown]
  - Musculoskeletal stiffness [Unknown]
